FAERS Safety Report 23273458 (Version 2)
Quarter: 2024Q1

REPORT INFORMATION
  Report Type: Report from Study
  Country: US (occurrence: US)
  Receive Date: 20231207
  Receipt Date: 20240119
  Transmission Date: 20240410
  Serious: Yes (Death)
  Sender: FDA-Public Use
  Company Number: US-DSJP-DSU-2023-150341

PATIENT
  Age: 69 Year
  Sex: Female
  Weight: 53.17 kg

DRUGS (1)
  1. ENHERTU [Suspect]
     Active Substance: FAM-TRASTUZUMAB DERUXTECAN-NXKI
     Indication: Product used for unknown indication
     Dosage: 314 MG
     Route: 065
     Dates: start: 20230403

REACTIONS (1)
  - Death [Fatal]

NARRATIVE: CASE EVENT DATE: 20230711
